FAERS Safety Report 24083070 (Version 7)
Quarter: 2025Q4

REPORT INFORMATION
  Report Type: Report from Study
  Country: CA (occurrence: CA)
  Receive Date: 20240712
  Receipt Date: 20251104
  Transmission Date: 20260117
  Serious: Yes (Other)
  Sender: BIOCON
  Company Number: CA-BIOCON BIOLOGICS LIMITED-BBL2024004993

PATIENT

DRUGS (2)
  1. HULIO [Suspect]
     Active Substance: ADALIMUMAB-FKJP
     Indication: Ankylosing spondylitis
     Dosage: 40 MILLIGRAM, BIWEEKLY
     Route: 058
     Dates: start: 20240807
  2. NAPROXEN [Concomitant]
     Active Substance: NAPROXEN
     Indication: Product used for unknown indication
     Dosage: 500 MILLIGRAM
     Route: 065

REACTIONS (8)
  - Uveitis [Unknown]
  - Laboratory test abnormal [Unknown]
  - Pain [Unknown]
  - Pyrexia [Recovering/Resolving]
  - Injection site irritation [Recovered/Resolved]
  - Product use issue [Unknown]
  - Circumstance or information capable of leading to medication error [Unknown]
  - Therapeutic response shortened [Unknown]
